FAERS Safety Report 7357622-8 (Version None)
Quarter: 2011Q1

REPORT INFORMATION
  Report Type: 
  Country: None (occurrence: None)
  Receive Date: 20110309
  Receipt Date: 20110224
  Transmission Date: 20110831
  Serious: Yes (Hospitalization)
  Sender: FDA-Public Use
  Company Number: 027661

PATIENT
  Sex: Female

DRUGS (5)
  1. PREDNISOLONE [Concomitant]
  2. LANSOPRAZOLE [Concomitant]
  3. ORLOC [Concomitant]
  4. CIMZIA [Suspect]
     Indication: RHEUMATOID ARTHRITIS
     Dosage: SUBCUTANEOUS
     Route: 058
     Dates: start: 20101216
  5. IDEOS [Concomitant]

REACTIONS (9)
  - CONDITION AGGRAVATED [None]
  - THROMBOCYTOPENIA [None]
  - C-REACTIVE PROTEIN INCREASED [None]
  - COUGH [None]
  - PYREXIA [None]
  - HEPATIC ENZYME INCREASED [None]
  - INJECTION SITE ERYTHEMA [None]
  - URTICARIA [None]
  - ANAEMIA [None]
